FAERS Safety Report 11182986 (Version 3)
Quarter: 2015Q2

REPORT INFORMATION
  Report Type: Spontaneous
  Country: CL (occurrence: CL)
  Receive Date: 20150611
  Receipt Date: 20150622
  Transmission Date: 20150821
  Serious: Yes (Other)
  Sender: FDA-Public Use
  Company Number: PHHY2015CL068776

PATIENT
  Age: 27 Year
  Sex: Female

DRUGS (1)
  1. GILENYA [Suspect]
     Active Substance: FINGOLIMOD HYDROCHLORIDE
     Indication: MULTIPLE SCLEROSIS
     Dosage: UNK UNK, QD
     Route: 048
     Dates: start: 20140404

REACTIONS (2)
  - Drug ineffective [Unknown]
  - Central nervous system lesion [Unknown]

NARRATIVE: CASE EVENT DATE: 20150603
